FAERS Safety Report 8505144-0 (Version None)
Quarter: 2012Q3

REPORT INFORMATION
  Report Type: 
  Country: None (occurrence: None)
  Receive Date: 20120712
  Receipt Date: 20120702
  Transmission Date: 20120928
  Serious: Yes (Hospitalization)
  Sender: FDA-Public Use
  Company Number: FR-JNJFOC-20120610133

PATIENT
  Sex: Male
  Weight: 35.1 kg

DRUGS (2)
  1. REMICADE [Suspect]
     Indication: CROHN'S DISEASE
     Route: 042
     Dates: start: 20090117
  2. HUMIRA [Concomitant]
     Indication: CROHN'S DISEASE
     Dates: start: 20091216

REACTIONS (2)
  - GASTROSTOMY [None]
  - FOOD INTOLERANCE [None]
